FAERS Safety Report 4551697-7 (Version None)
Quarter: 2005Q1

REPORT INFORMATION
  Report Type: 
  Country: None (occurrence: None)
  Receive Date: 20050111
  Receipt Date: 20041229
  Transmission Date: 20050727
  Serious: Yes (Other)
  Sender: FDA-Public Use
  Company Number: S04-USA-07938-01

PATIENT
  Age: 88 Year
  Sex: Male

DRUGS (9)
  1. NAMENDA [Suspect]
     Indication: DEMENTIA ALZHEIMER'S TYPE
     Dosage: 10 MG QHS PO
     Route: 048
     Dates: start: 20041011, end: 20041017
  2. NAMENDA [Suspect]
     Indication: DEMENTIA ALZHEIMER'S TYPE
     Dosage: 15 MG QD PO
     Route: 048
     Dates: start: 20041018, end: 20041024
  3. NAMENDA [Suspect]
     Indication: DEMENTIA ALZHEIMER'S TYPE
     Dosage: 10 MG BID PO
     Route: 048
     Dates: start: 20041025, end: 20041206
  4. NAMENDA [Suspect]
     Indication: DEMENTIA ALZHEIMER'S TYPE
     Dosage: 5 MG QHS PO
     Route: 048
     Dates: start: 20041004, end: 20041010
  5. HYDROCHLOROTHIAZIDE [Concomitant]
  6. COUMADIN [Concomitant]
  7. POTASSIUM CHLORIDE [Concomitant]
  8. SURFAK (DOCUSATE CALCIUM) [Concomitant]
  9. MULTI-VITAMIN [Concomitant]

REACTIONS (3)
  - BLOOD PRESSURE DIASTOLIC DECREASED [None]
  - CONDITION AGGRAVATED [None]
  - HYPERTENSION [None]
